FAERS Safety Report 7999222-2 (Version None)
Quarter: 2011Q4

REPORT INFORMATION
  Report Type: 
  Country: None (occurrence: None)
  Receive Date: 20111221
  Receipt Date: 20111215
  Transmission Date: 20120403
  Serious: Yes (Death, Other)
  Sender: FDA-Public Use
  Company Number: FR-PFIZER INC-2011171696

PATIENT
  Age: 62 Year
  Sex: Male
  Weight: 65 kg

DRUGS (1)
  1. SUTENT [Suspect]
     Indication: RENAL CANCER METASTATIC
     Dosage: 50 MG, 1X/DAY, 4 WEEKS ON/2 WEEKS OFF
     Route: 048
     Dates: start: 20110501

REACTIONS (14)
  - DEATH [None]
  - BLOOD LACTATE DEHYDROGENASE INCREASED [None]
  - BACK PAIN [None]
  - ABDOMINAL PAIN [None]
  - WEIGHT DECREASED [None]
  - TRANSAMINASES INCREASED [None]
  - DECREASED APPETITE [None]
  - SWEAT DISCOLOURATION [None]
  - VOMITING [None]
  - COMA [None]
  - CHROMATURIA [None]
  - NAUSEA [None]
  - PYREXIA [None]
  - ASTHENIA [None]
